FAERS Safety Report 9815597 (Version 1)
Quarter: 2014Q1

REPORT INFORMATION
  Report Type: Spontaneous
  Country: HR (occurrence: None)
  Receive Date: 20140110
  Receipt Date: 20140110
  Transmission Date: 20141002
  Serious: Yes (Hospitalization)
  Sender: FDA-Public Use
  Company Number: HR-20130003

PATIENT
  Age: 46 Year
  Sex: Female

DRUGS (3)
  1. DOTAREM [Suspect]
     Indication: NUCLEAR MAGNETIC RESONANCE IMAGING BRAIN
     Dosage: ( 15 ML, 1 IN 1 DAY
  2. MTHYLPREDNISOLONE (METHYLPREDISOLONE) (METHYLPREDNISOLONE) (METHYLSOLONE) [Concomitant]
  3. METFORMIN (METFORMIN) (METFORMIN) [Concomitant]

REACTIONS (6)
  - Kounis syndrome [None]
  - Hyperglycaemia [None]
  - Shock [None]
  - Leukocytosis [None]
  - Aspartate aminotransferase increased [None]
  - Alanine aminotransferase increased [None]
